FAERS Safety Report 14169579 (Version 1)
Quarter: 2017Q4

REPORT INFORMATION
  Report Type: Spontaneous
  Country: US (occurrence: US)
  Receive Date: 20171107
  Receipt Date: 20171107
  Transmission Date: 20180321
  Serious: Yes (Other)
  Sender: FDA-Public Use
  Company Number: None

PATIENT
  Sex: Female
  Weight: 65.7 kg

DRUGS (4)
  1. IUD NOS [Concomitant]
     Active Substance: COPPER OR LEVONORGESTREL
  2. DULOXETINE HCL 60 MG [Suspect]
     Active Substance: DULOXETINE HYDROCHLORIDE
     Indication: MAJOR DEPRESSION
     Dosage: ?          QUANTITY:2 CAPSULE(S);?
     Route: 048
     Dates: start: 20070731, end: 20171102
  3. IBUPROFEN. [Concomitant]
     Active Substance: IBUPROFEN
  4. TIZANIDINE. [Concomitant]
     Active Substance: TIZANIDINE

REACTIONS (15)
  - Muscle spasms [None]
  - Syncope [None]
  - Arthralgia [None]
  - Heart rate increased [None]
  - Paraesthesia [None]
  - Chills [None]
  - Fear [None]
  - Amnesia [None]
  - Seizure [None]
  - Pain [None]
  - Hyperhidrosis [None]
  - Withdrawal syndrome [None]
  - Dizziness [None]
  - Anger [None]
  - Gastrointestinal disorder [None]

NARRATIVE: CASE EVENT DATE: 20171102
